FAERS Safety Report 19787215 (Version 1)
Quarter: 2021Q3

REPORT INFORMATION
  Report Type: Spontaneous
  Country: CN (occurrence: CN)
  Receive Date: 20210903
  Receipt Date: 20210903
  Transmission Date: 20211014
  Serious: Yes (Hospitalization, Other)
  Sender: FDA-Public Use
  Company Number: CN-PFIZER INC-202101119576

PATIENT
  Age: 17 Year
  Sex: Female
  Weight: 40 kg

DRUGS (4)
  1. HOLOXAN [Suspect]
     Active Substance: IFOSFAMIDE
     Indication: CHEMOTHERAPY
     Dosage: 1 G, 1X/DAY
     Route: 041
     Dates: start: 20210620, end: 20210624
  2. METHOTREXATE. [Suspect]
     Active Substance: METHOTREXATE
     Indication: CHEMOTHERAPY
     Dosage: 4000 MG, 1X/DAY
     Route: 041
     Dates: start: 20210620, end: 20210620
  3. ETOPOSIDE. [Suspect]
     Active Substance: ETOPOSIDE
     Indication: CHEMOTHERAPY
     Dosage: 7 ML, 1X/DAY
     Route: 041
     Dates: start: 20210624, end: 20210625
  4. CYTARABINE. [Suspect]
     Active Substance: CYTARABINE
     Indication: CHEMOTHERAPY
     Dosage: 0.2 G, 1X/DAY
     Route: 041
     Dates: start: 20210624, end: 20210625

REACTIONS (1)
  - Myelosuppression [Recovering/Resolving]

NARRATIVE: CASE EVENT DATE: 20210702
